FAERS Safety Report 7429901-7 (Version None)
Quarter: 2011Q2

REPORT INFORMATION
  Report Type: 
  Country: None (occurrence: None)
  Receive Date: 20110421
  Receipt Date: 20110115
  Transmission Date: 20111010
  Serious: No
  Sender: FDA-Public Use
  Company Number: US-TEVA-263554USA

PATIENT
  Sex: Female
  Weight: 54.48 kg

DRUGS (4)
  1. PRILOSEC [Concomitant]
     Indication: REFLUX OESOPHAGITIS
  2. PLAN B ONE-STEP [Suspect]
     Indication: POST COITAL CONTRACEPTION
     Dosage: 1.5 MILLIGRAM;
     Route: 048
     Dates: start: 20101218, end: 20101218
  3. ZOLOFT [Concomitant]
     Indication: ANXIETY
  4. SINGULAIR [Concomitant]
     Indication: MULTIPLE ALLERGIES

REACTIONS (1)
  - MENSTRUATION IRREGULAR [None]
